FAERS Safety Report 7910747 (Version 6)
Quarter: 2013Q2

REPORT INFORMATION
  Report Type: Report from Study
  Country: PH (occurrence: PH)
  Receive Date: 20110422
  Receipt Date: 20130426
  Transmission Date: 20140414
  Serious: Yes (Death, Hospitalization)
  Sender: FDA-Public Use
  Company Number: PH-BRISTOL-MYERS SQUIBB COMPANY-15683931

PATIENT
  Age: 65 Year
  Sex: Male

DRUGS (12)
  1. CISPLATIN [Suspect]
     Indication: NON-SMALL CELL LUNG CANCER
     Dosage: LAST INFUSION ON 10APR11?NO: OF INF-3?INTERRUPTED ON 14APR11
     Route: 065
     Dates: start: 20110224
  2. GEMCITABINE HCL [Suspect]
     Indication: NON-SMALL CELL LUNG CANCER
     Dosage: LAST INFUSION ON 10APR11?NO: OF INFUSIONS-5?INTERRUPTED ON 14APR11
     Route: 065
     Dates: start: 20110224
  3. DOXOFYLLINE [Concomitant]
     Dates: start: 20110114
  4. AMLODIPINE [Concomitant]
     Dates: start: 20110114
  5. SPIRIVA [Concomitant]
     Dates: start: 20110114
  6. LOSARTAN [Concomitant]
     Dates: start: 20110114
  7. MULTIVITAMIN [Concomitant]
     Dates: start: 20110114
  8. ETORICOXIB [Concomitant]
     Dates: start: 20110316
  9. PARACETAMOL [Concomitant]
     Dates: start: 20110316
  10. TRAMADOL HCL [Concomitant]
     Dates: start: 20110316
  11. ACETYLCYSTEINE [Concomitant]
     Dates: start: 20110114
  12. LACTULOSE [Concomitant]
     Dates: start: 20110404, end: 20110410

REACTIONS (6)
  - Malignant neoplasm progression [Fatal]
  - Cardio-respiratory arrest [Fatal]
  - Multi-organ failure [Fatal]
  - Renal failure acute [Fatal]
  - Dehydration [Fatal]
  - Diarrhoea [Recovered/Resolved with Sequelae]
